FAERS Safety Report 24214239 (Version 1)
Quarter: 2024Q3

REPORT INFORMATION
  Report Type: Spontaneous
  Country: US (occurrence: US)
  Receive Date: 20240815
  Receipt Date: 20240815
  Transmission Date: 20241017
  Serious: No
  Sender: JOHNSON AND JOHNSON
  Company Number: US-JNJFOC-20240764062

PATIENT
  Sex: Female

DRUGS (1)
  1. IMODIUM [Suspect]
     Active Substance: LOPERAMIDE HYDROCHLORIDE
     Indication: Diarrhoea
     Dosage: TOOK 2 IMODIUM ON 22-JUL AND THEN ONE MORE FOR A LOOSE STOOL, ON 23-JUL  MORNING, BY MISTAKE, TOOK
     Route: 065
     Dates: start: 20240722

REACTIONS (1)
  - Incorrect dose administered [Unknown]
